FAERS Safety Report 16999924 (Version 1)
Quarter: 2019Q4

REPORT INFORMATION
  Report Type: Spontaneous
  Country: US (occurrence: US)
  Receive Date: 20191106
  Receipt Date: 20191106
  Transmission Date: 20200122
  Serious: Yes (Hospitalization)
  Sender: FDA-Public Use
  Company Number: US-BAYER-2019-200486

PATIENT
  Age: 40 Year
  Sex: Female
  Weight: 81.27 kg

DRUGS (10)
  1. CO Q 10 [COD-LIVER OIL;RETINOL;TOCOPHEROL;UBIDECARENONE;VITAMIN D [Concomitant]
     Dosage: 100 MG, QD
  2. ZETIA [Concomitant]
     Active Substance: EZETIMIBE
     Indication: BLOOD CHOLESTEROL
     Dosage: 10 MG, QD
  3. PROAIR HFA [Concomitant]
     Active Substance: ALBUTEROL SULFATE
     Indication: ASTHMA
     Dosage: 108 ?G, UNK
  4. LEVOTHYROXINE. [Concomitant]
     Active Substance: LEVOTHYROXINE
     Indication: HYPOTHYROIDISM
     Dosage: 88 ?G, QD
  5. BAYER LOW DOSE [Suspect]
     Active Substance: ASPIRIN
     Indication: DEEP VEIN THROMBOSIS
     Dosage: 81 MG, UNK
     Route: 065
  6. LOVAZA [Concomitant]
     Active Substance: OMEGA-3-ACID ETHYL ESTERS
     Indication: BLOOD CHOLESTEROL
     Dosage: 1 G, BID
  7. VITAMIN D3 [Concomitant]
     Active Substance: CHOLECALCIFEROL
     Indication: VITAMIN D DECREASED
     Dosage: 5000 IU, QD
  8. XARELTO [Suspect]
     Active Substance: RIVAROXABAN
     Indication: DEEP VEIN THROMBOSIS
     Dosage: 10 MG, QD
     Route: 048
     Dates: start: 20180820
  9. MONTELUKAST [Concomitant]
     Active Substance: MONTELUKAST SODIUM
     Indication: ASTHMA
     Dosage: 10 MG, QD
  10. CRESTOR [Concomitant]
     Active Substance: ROSUVASTATIN CALCIUM
     Indication: BLOOD CHOLESTEROL
     Dosage: 20 MG, QD

REACTIONS (1)
  - Haematoma [Not Recovered/Not Resolved]

NARRATIVE: CASE EVENT DATE: 20191011
